FAERS Safety Report 13162269 (Version 1)
Quarter: 2017Q1

REPORT INFORMATION
  Report Type: Spontaneous
  Country: US (occurrence: US)
  Receive Date: 20170127
  Receipt Date: 20170127
  Transmission Date: 20170428
  Serious: No
  Sender: FDA-Public Use
  Company Number: None

PATIENT
  Age: 34 Year
  Sex: Female
  Weight: 51.71 kg

DRUGS (5)
  1. ORTHO TRI CYCLEN LO [Concomitant]
     Active Substance: ETHINYL ESTRADIOL\NORGESTIMATE
  2. SKYLA [Suspect]
     Active Substance: LEVONORGESTREL
  3. CETIRIZINE HCL [Concomitant]
     Active Substance: CETIRIZINE HYDROCHLORIDE
  4. EFFEXOR XR [Concomitant]
     Active Substance: VENLAFAXINE HYDROCHLORIDE
  5. MULTIVITAMIN AND OMEGA SUPPLEMENT [Concomitant]

REACTIONS (7)
  - Feeling abnormal [None]
  - Depression [None]
  - Hormone level abnormal [None]
  - Anger [None]
  - Feeling of despair [None]
  - Quality of life decreased [None]
  - Emotional disorder [None]
